FAERS Safety Report 4712553-4 (Version None)
Quarter: 2005Q3

REPORT INFORMATION
  Report Type: 
  Country: None (occurrence: None)
  Receive Date: 20050711
  Receipt Date: 20050623
  Transmission Date: 20060218
  Serious: Yes (Other)
  Sender: FDA-Public Use
  Company Number: 2004BL004419

PATIENT
  Age: 70 Year
  Sex: Female

DRUGS (1)
  1. RETISERT [Suspect]
     Indication: DIABETIC RETINAL OEDEMA
     Dosage: LEFT EYE
     Dates: start: 20010423, end: 20040617

REACTIONS (9)
  - BLINDNESS UNILATERAL [None]
  - CULTURE POSITIVE [None]
  - ENDOPHTHALMITIS [None]
  - EYE PAIN [None]
  - HAEMOPHILUS INFECTION [None]
  - POST PROCEDURAL COMPLICATION [None]
  - PULMONARY TUBERCULOSIS [None]
  - TUBERCULOSIS OF EYE [None]
  - VITREOUS FLOATERS [None]
